FAERS Safety Report 24396705 (Version 4)
Quarter: 2024Q4

REPORT INFORMATION
  Report Type: Report from Study
  Country: US (occurrence: US)
  Receive Date: 20241004
  Receipt Date: 20241223
  Transmission Date: 20250115
  Serious: Yes (Hospitalization, Other)
  Sender: ABBVIE
  Company Number: US-ABBVIE-5947619

PATIENT
  Age: 81 Year
  Sex: Male

DRUGS (1)
  1. RINVOQ [Suspect]
     Active Substance: UPADACITINIB
     Indication: Rheumatoid arthritis
     Route: 048
     Dates: start: 20231122

REACTIONS (6)
  - Stress fracture [Not Recovered/Not Resolved]
  - Ligament sprain [Unknown]
  - Back pain [Not Recovered/Not Resolved]
  - Pleural effusion [Not Recovered/Not Resolved]
  - Herpes zoster [Recovering/Resolving]
  - Bone cancer [Unknown]

NARRATIVE: CASE EVENT DATE: 20240801
